FAERS Safety Report 7283866-X (Version None)
Quarter: 2011Q1

REPORT INFORMATION
  Report Type: 
  Country: None (occurrence: None)
  Receive Date: 20110209
  Receipt Date: 20110203
  Transmission Date: 20110831
  Serious: Yes (Other)
  Sender: FDA-Public Use
  Company Number: JP-PFIZER INC-2011024446

PATIENT
  Age: 1 Year

DRUGS (1)
  1. ZITHROMAX [Suspect]
     Dosage: UNK
     Dates: end: 20110203

REACTIONS (1)
  - OTITIS MEDIA [None]
